FAERS Safety Report 12771820 (Version 6)
Quarter: 2017Q1

REPORT INFORMATION
  Report Type: Spontaneous
  Country: JP (occurrence: JP)
  Receive Date: 20160922
  Receipt Date: 20170126
  Transmission Date: 20170428
  Serious: Yes (Life-Threatening)
  Sender: FDA-Public Use
  Company Number: JP-MALLINCKRODT-T201604573

PATIENT
  Age: 83 Year
  Sex: Male
  Weight: 73 kg

DRUGS (3)
  1. OFIRMEV [Suspect]
     Active Substance: ACETAMINOPHEN
     Indication: ANALGESIC THERAPY
     Dosage: 1000 MG (1/1 DAY)
     Route: 041
     Dates: start: 20160420, end: 20160420
  2. PENTAZOCINE [Suspect]
     Active Substance: PENTAZOCINE
     Indication: ANALGESIC THERAPY
     Dosage: UNK
     Route: 041
     Dates: start: 20160420, end: 20160420
  3. NICARDIPINE HYDROCHLORIDE. [Suspect]
     Active Substance: NICARDIPINE HYDROCHLORIDE
     Indication: HYPERTENSION
     Dosage: UNK
     Route: 041
     Dates: start: 20160420, end: 20160420

REACTIONS (2)
  - Blood pressure decreased [Recovered/Resolved]
  - Cardio-respiratory arrest [Recovered/Resolved]

NARRATIVE: CASE EVENT DATE: 20160420
